FAERS Safety Report 9706496 (Version 3)
Quarter: 2014Q1

REPORT INFORMATION
  Report Type: Report from Study
  Country: IT (occurrence: IT)
  Receive Date: 20131125
  Receipt Date: 20140207
  Transmission Date: 20141002
  Serious: Yes (Death, Other)
  Sender: FDA-Public Use
  Company Number: IT-ROCHE-1239269

PATIENT
  Age: 59 Year
  Sex: Female

DRUGS (2)
  1. ZELBORAF [Suspect]
     Indication: METASTATIC MALIGNANT MELANOMA
     Route: 048
     Dates: start: 20121219, end: 20130610
  2. COMBISARTAN [Concomitant]
     Indication: HYPERTENSION
     Dosage: 162/25MG
     Route: 048

REACTIONS (7)
  - Death [Fatal]
  - Dyspnoea [Recovering/Resolving]
  - Disease progression [Unknown]
  - Skin papilloma [Not Recovered/Not Resolved]
  - Hyperkeratosis [Not Recovered/Not Resolved]
  - Arthralgia [Recovering/Resolving]
  - Oedema peripheral [Unknown]
